FAERS Safety Report 5013691-1 (Version None)
Quarter: 2006Q2

REPORT INFORMATION
  Report Type: 
  Country: None (occurrence: None)
  Receive Date: 20060530
  Receipt Date: 20060524
  Transmission Date: 20061013
  Serious: Yes (Death)
  Sender: FDA-Public Use
  Company Number: US-KINGPHARMUSA00001-K200600676

PATIENT
  Age: 35 Year
  Sex: Female

DRUGS (1)
  1. BICILLIN L-A [Suspect]
     Indication: RHEUMATIC HEART DISEASE
     Dosage: 12 LAC, I.U
     Route: 030

REACTIONS (4)
  - DEATH [None]
  - DRUG EXPOSURE DURING PREGNANCY [None]
  - FALL [None]
  - SYNCOPE [None]
